FAERS Safety Report 9453036 (Version 5)
Quarter: 2013Q3

REPORT INFORMATION
  Report Type: Spontaneous
  Country: CZ (occurrence: CZ)
  Receive Date: 20130812
  Receipt Date: 20130911
  Transmission Date: 20140515
  Serious: Yes (Death, Other)
  Sender: FDA-Public Use
  Company Number: PHHY2013CZ083940

PATIENT
  Age: 36 Year
  Sex: Female

DRUGS (3)
  1. GILENYA [Suspect]
     Indication: MULTIPLE SCLEROSIS
     Route: 048
     Dates: start: 20130226
  2. TRITTICO [Concomitant]
     Indication: DEPRESSION
     Dosage: 75 MG, QD
  3. VIGANTOL ^BAYER^ [Concomitant]

REACTIONS (6)
  - Cerebral haemorrhage [Fatal]
  - Basal ganglia haemorrhage [Fatal]
  - Subarachnoid haemorrhage [Fatal]
  - Intraventricular haemorrhage [Unknown]
  - Hypoacusis [Unknown]
  - Brain oedema [Unknown]
